FAERS Safety Report 11914478 (Version 1)
Quarter: 2016Q1

REPORT INFORMATION
  Report Type: Spontaneous
  Country: US (occurrence: US)
  Receive Date: 20160113
  Receipt Date: 20160113
  Transmission Date: 20160526
  Serious: Yes (Other)
  Sender: FDA-Public Use
  Company Number: US-BAXTER-2016BAX001046

PATIENT
  Sex: Female

DRUGS (2)
  1. POTASSIUM [Suspect]
     Active Substance: POTASSIUM
     Indication: HYPOKALAEMIA
     Route: 042
     Dates: start: 20151218, end: 20151219
  2. 0.9% SODIUM CHLORIDE INJECTION [Suspect]
     Active Substance: SODIUM CHLORIDE
     Indication: MEDICATION DILUTION
     Route: 042
     Dates: start: 20151218, end: 20151219

REACTIONS (7)
  - Cough [Not Recovered/Not Resolved]
  - Insomnia [Recovering/Resolving]
  - Dyspnoea [Recovering/Resolving]
  - Vein rupture [Recovered/Resolved]
  - Pneumonia [Not Recovered/Not Resolved]
  - Oedema peripheral [Recovered/Resolved]
  - Oedema peripheral [Recovered/Resolved]

NARRATIVE: CASE EVENT DATE: 20151218
